FAERS Safety Report 5961873-4 (Version None)
Quarter: 2008Q4

REPORT INFORMATION
  Report Type: 
  Country: None (occurrence: None)
  Receive Date: 20081121
  Receipt Date: 20080812
  Transmission Date: 20090506
  Serious: Yes (Other)
  Sender: FDA-Public Use
  Company Number: US-BRISTOL-MYERS SQUIBB COMPANY-14277909

PATIENT
  Age: 55 Year
  Sex: Male

DRUGS (2)
  1. AVALIDE [Suspect]
     Indication: HYPERTENSION
     Dosage: 1 DOSAGE FORM=300/12.5 UNITS NOT SPECIFIED.
     Route: 048
     Dates: start: 20080605
  2. LIPITOR [Suspect]

REACTIONS (1)
  - RENAL FAILURE [None]
